FAERS Safety Report 17098106 (Version 2)
Quarter: 2019Q4

REPORT INFORMATION
  Report Type: Report from Study
  Country: IN (occurrence: IN)
  Receive Date: 20191202
  Receipt Date: 20191206
  Transmission Date: 20200122
  Serious: Yes (Death, Other)
  Sender: FDA-Public Use
  Company Number: IN-BRISTOL-MYERS SQUIBB COMPANY-BMS-2019-115056

PATIENT
  Age: 64 Year
  Sex: Male

DRUGS (1)
  1. NIVOLUMAB [Suspect]
     Active Substance: NIVOLUMAB
     Indication: HODGKIN^S DISEASE
     Dosage: 280 MILLIGRAM, Q2WK
     Route: 042
     Dates: start: 20191024

REACTIONS (1)
  - Death [Fatal]

NARRATIVE: CASE EVENT DATE: 20191121
